FAERS Safety Report 20744432 (Version 17)
Quarter: 2025Q1

REPORT INFORMATION
  Report Type: Report from Study
  Country: US (occurrence: US)
  Receive Date: 20220425
  Receipt Date: 20250217
  Transmission Date: 20250408
  Serious: Yes (Hospitalization, Other)
  Sender: TAKEDA
  Company Number: US-TAKEDA-2022TUS026320

PATIENT
  Sex: Male
  Weight: 75 kg

DRUGS (24)
  1. HUMAN IMMUNOGLOBULIN G\HYALURONIDASE RECOMBINANT HUMAN [Suspect]
     Active Substance: HUMAN IMMUNOGLOBULIN G\HYALURONIDASE (HUMAN RECOMBINANT)
     Indication: Immunodeficiency common variable
     Dosage: 45 GRAM, Q4WEEKS
     Dates: start: 20210121
  2. SODIUM CHLORIDE [Concomitant]
     Active Substance: SODIUM CHLORIDE
  3. ACETAMINOPHEN [Concomitant]
     Active Substance: ACETAMINOPHEN
  4. PREDNISONE [Concomitant]
     Active Substance: PREDNISONE
  5. SPIRIVA [Concomitant]
     Active Substance: TIOTROPIUM BROMIDE MONOHYDRATE
  6. VITAMIN D [Concomitant]
     Active Substance: VITAMIN D NOS
  7. SINGULAIR [Concomitant]
     Active Substance: MONTELUKAST SODIUM
  8. DULERA [Concomitant]
     Active Substance: FORMOTEROL FUMARATE DIHYDRATE\MOMETASONE FUROATE
  9. TAMSULOSIN HYDROCHLORIDE [Concomitant]
     Active Substance: TAMSULOSIN HYDROCHLORIDE
  10. ATORVASTATIN CALCIUM [Concomitant]
     Active Substance: ATORVASTATIN CALCIUM
  11. LEVOTHYROXINE SODIUM [Concomitant]
     Active Substance: LEVOTHYROXINE SODIUM
  12. LIDOCAINE [Concomitant]
     Active Substance: LIDOCAINE
  13. EPIPEN [Concomitant]
     Active Substance: EPINEPHRINE
  14. FASENRA [Concomitant]
     Active Substance: BENRALIZUMAB
  15. ASPIRIN [Concomitant]
     Active Substance: ASPIRIN
  16. DIPHENHYDRAMINE HYDROCHLORIDE [Concomitant]
     Active Substance: DIPHENHYDRAMINE HYDROCHLORIDE
  17. PROAIR DIGIHALER [Concomitant]
     Active Substance: ALBUTEROL SULFATE
  18. PAXLOVID [Concomitant]
     Active Substance: NIRMATRELVIR\RITONAVIR
  19. ZINC GLUCONATE [Concomitant]
     Active Substance: ZINC GLUCONATE
  20. DIPHENHYDRAMINE [Concomitant]
     Active Substance: DIPHENHYDRAMINE
  21. ZINC [Concomitant]
     Active Substance: ZINC
  22. EPINEPHRINE [Concomitant]
     Active Substance: EPINEPHRINE
  23. FAMOTIDINE [Concomitant]
     Active Substance: FAMOTIDINE
  24. Lmx [Concomitant]

REACTIONS (14)
  - Urinary retention [Unknown]
  - Hernia [Unknown]
  - Urinary tract infection [Unknown]
  - Viral pharyngitis [Unknown]
  - COVID-19 [Unknown]
  - Infection [Unknown]
  - Respiratory tract infection [Unknown]
  - Infusion site discharge [Unknown]
  - Needle issue [Unknown]
  - Hiatus hernia [Unknown]
  - Insurance issue [Unknown]
  - Product use issue [Unknown]
  - Asthma [Recovering/Resolving]
  - Cough [Unknown]
